FAERS Safety Report 6517677-7 (Version None)
Quarter: 2009Q4

REPORT INFORMATION
  Report Type: 
  Country: None (occurrence: None)
  Receive Date: 20091224
  Receipt Date: 20091221
  Transmission Date: 20100525
  Serious: Yes (Hospitalization)
  Sender: FDA-Public Use
  Company Number: US-WYE-H12730909

PATIENT
  Age: 61 Year
  Sex: Male

DRUGS (8)
  1. VENLAFAXINE HYDROCHLORIDE [Suspect]
     Indication: MAJOR DEPRESSION
  2. VENLAFAXINE HYDROCHLORIDE [Interacting]
  3. VENLAFAXINE HYDROCHLORIDE [Interacting]
     Dosage: TAPERED THEN DISCONTINUED
  4. METOCLOPRAMIDE [Concomitant]
     Dosage: UNSPECIFIED
  5. OXYCODONE [Concomitant]
     Indication: BACK PAIN
     Dosage: UNSPECIFIED
  6. CIPROFLOXACIN [Interacting]
     Dosage: UNSPECIFIED
  7. HYDROMORPHONE [Concomitant]
     Indication: BACK PAIN
     Dosage: UNSPECIFIED
  8. METHADONE HYDROCHLORIDE [Interacting]
     Indication: BACK PAIN
     Dosage: UNSPECIFIED

REACTIONS (2)
  - DRUG INTERACTION [None]
  - SEROTONIN SYNDROME [None]
